FAERS Safety Report 11025616 (Version 3)
Quarter: 2015Q2

REPORT INFORMATION
  Report Type: Spontaneous
  Country: JP (occurrence: JP)
  Receive Date: 20150414
  Receipt Date: 20150528
  Transmission Date: 20150821
  Serious: Yes (Hospitalization, Other)
  Sender: FDA-Public Use
  Company Number: JP-GLAXOSMITHKLINE-JP2015JPN046214

PATIENT

DRUGS (13)
  1. ISENTRESS [Concomitant]
     Active Substance: RALTEGRAVIR POTASSIUM
     Dosage: 1 DF, BID
  2. CLARITH [Concomitant]
     Active Substance: CLARITHROMYCIN
  3. LOXOPROFEN [Concomitant]
     Active Substance: LOXOPROFEN
  4. PREZISTANAIVE [Concomitant]
     Active Substance: DARUNAVIR
  5. LEXIVA [Concomitant]
     Active Substance: FOSAMPRENAVIR CALCIUM
     Dosage: 2 DF, BID
     Route: 048
  6. BROTIZOLAM OD [Concomitant]
     Indication: INSOMNIA
     Dosage: 0.25 MG, PRN
  7. REBAMIPIDE [Concomitant]
     Active Substance: REBAMIPIDE
     Indication: PAIN
  8. CELSENTRI [Concomitant]
     Active Substance: MARAVIROC
     Dosage: 1 DF, BID
     Route: 048
  9. REBAMIPIDE [Concomitant]
     Active Substance: REBAMIPIDE
     Indication: PYREXIA
     Dosage: 100 MG, PRN
  10. EDURANT [Concomitant]
     Active Substance: RILPIVIRINE HYDROCHLORIDE
  11. NORVIR [Concomitant]
     Active Substance: RITONAVIR
  12. EPIVIR [Suspect]
     Active Substance: LAMIVUDINE
     Dosage: 150 MG, BID
     Route: 048
  13. EPIVIR [Suspect]
     Active Substance: LAMIVUDINE
     Dosage: 300 MG, QD
     Route: 048

REACTIONS (3)
  - Pancytopenia [Unknown]
  - Acute myeloid leukaemia [Unknown]
  - Decreased appetite [Unknown]
